FAERS Safety Report 6658087-1 (Version None)
Quarter: 2010Q1

REPORT INFORMATION
  Report Type: 
  Country: None (occurrence: None)
  Receive Date: 20100330
  Receipt Date: 20100322
  Transmission Date: 20100710
  Serious: Yes (Other)
  Sender: FDA-Public Use
  Company Number: US-SANOFI-AVENTIS-2010SA016982

PATIENT
  Age: 81 Year
  Sex: Male

DRUGS (4)
  1. LANTUS [Suspect]
     Indication: DIABETES MELLITUS
     Dosage: DOSE:55 UNIT(S)
     Route: 058
  2. APIDRA [Suspect]
     Dosage: PER SLIDING SCALE 2-3 TIMES PER DAY
     Route: 058
  3. OPTICLICK [Suspect]
     Indication: DIABETES MELLITUS
  4. OPTICLICK [Suspect]

REACTIONS (1)
  - CATARACT [None]
